FAERS Safety Report 14533140 (Version 1)
Quarter: 2018Q1

REPORT INFORMATION
  Report Type: Spontaneous
  Country: US (occurrence: US)
  Receive Date: 20180215
  Receipt Date: 20180215
  Transmission Date: 20180509
  Serious: Yes (Other)
  Sender: FDA-Public Use
  Company Number: US-TEVA-2018-US-857664

PATIENT
  Sex: Male

DRUGS (1)
  1. ALENDRONATE SODIUM. [Suspect]
     Active Substance: ALENDRONATE SODIUM
     Indication: OSTEOPOROSIS
     Dosage: DOSE STRENGTH:  70
     Route: 065
     Dates: start: 2008, end: 20180126

REACTIONS (7)
  - Tooth disorder [Unknown]
  - Oral pain [Unknown]
  - Osteonecrosis of jaw [Unknown]
  - Jaw disorder [Unknown]
  - Tooth loss [Unknown]
  - Pain in jaw [Unknown]
  - Tooth extraction [Unknown]

NARRATIVE: CASE EVENT DATE: 2016
